FAERS Safety Report 6831575-0 (Version None)
Quarter: 2010Q3

REPORT INFORMATION
  Report Type: 
  Country: None (occurrence: None)
  Receive Date: 20100712
  Receipt Date: 20100701
  Transmission Date: 20110219
  Serious: Yes (Other)
  Sender: FDA-Public Use
  Company Number: JP-JNJFOC-20100701249

PATIENT
  Age: 20 Year

DRUGS (4)
  1. RISPERIDONE [Suspect]
     Indication: PRODUCT USED FOR UNKNOWN INDICATION
     Route: 048
  2. RISPERIDONE [Suspect]
     Route: 048
  3. RISPERIDONE [Suspect]
     Route: 048
  4. RISPERIDONE [Suspect]
     Route: 048

REACTIONS (7)
  - APATHY [None]
  - DECREASED ACTIVITY [None]
  - DEPRESSION [None]
  - LISTLESS [None]
  - MALAISE [None]
  - NAUSEA [None]
  - SOMNOLENCE [None]
